FAERS Safety Report 23488808 (Version 2)
Quarter: 2024Q1

REPORT INFORMATION
  Report Type: Spontaneous
  Country: US (occurrence: US)
  Receive Date: 20240206
  Receipt Date: 20240228
  Transmission Date: 20240409
  Serious: No
  Sender: FDA-Public Use
  Company Number: US-PFIZER INC-PV202400016849

PATIENT
  Age: 59 Year
  Sex: Male

DRUGS (1)
  1. XELJANZ [Suspect]
     Active Substance: TOFACITINIB CITRATE
     Indication: Colitis ulcerative
     Dosage: 10 MG, 2X/DAY
     Route: 048
     Dates: start: 202312, end: 202401

REACTIONS (3)
  - Drug ineffective [Unknown]
  - Abdominal discomfort [Recovering/Resolving]
  - Flatulence [Recovering/Resolving]
